FAERS Safety Report 9979789 (Version 1)
Quarter: 2014Q1

REPORT INFORMATION
  Report Type: Report from Study
  Country: GB (occurrence: GB)
  Receive Date: 20140306
  Receipt Date: 20140306
  Transmission Date: 20141002
  Serious: Yes (Hospitalization)
  Sender: FDA-Public Use
  Company Number: GB-AMGEN-GBRCT2014015967

PATIENT
  Age: 76 Year
  Sex: Female
  Weight: 76 kg

DRUGS (7)
  1. ETANERCEPT [Suspect]
     Indication: PRODUCT USED FOR UNKNOWN INDICATION
     Dosage: 25 MG, 2 TIMES/WK
     Route: 065
     Dates: start: 20100301, end: 20110316
  2. ETANERCEPT [Suspect]
     Dosage: 50 MG, 2 TIMES/WK
     Route: 065
     Dates: start: 20110316
  3. ALLOPURINOL [Concomitant]
     Dosage: UNK
     Dates: start: 20100323
  4. SIMVASTATIN [Concomitant]
     Dosage: UNK
     Dates: start: 20100323
  5. AMLODIPINE [Concomitant]
     Dosage: UNK
     Dates: start: 20100412
  6. ENALAPRIL [Concomitant]
     Dosage: UNK
     Dates: start: 20100412
  7. AMITRIPTYLINE [Concomitant]
     Dosage: UNK
     Dates: start: 20110502

REACTIONS (1)
  - Umbilical hernia [Recovered/Resolved]
